FAERS Safety Report 12208767 (Version 1)
Quarter: 2016Q1

REPORT INFORMATION
  Report Type: Spontaneous
  Country: US (occurrence: US)
  Receive Date: 20160324
  Receipt Date: 20160324
  Transmission Date: 20160526
  Serious: No
  Sender: FDA-Public Use
  Company Number: US-SHIONOGI, INC-2015001213

PATIENT
  Age: 66 Year
  Sex: Female

DRUGS (8)
  1. OSPHENA [Suspect]
     Active Substance: OSPEMIFENE
     Indication: VULVOVAGINAL PAIN
     Dosage: 60 MG, QD
     Route: 048
     Dates: start: 20151110
  2. OSPHENA [Suspect]
     Active Substance: OSPEMIFENE
     Indication: BLADDER PROLAPSE
  3. OSPHENA [Suspect]
     Active Substance: OSPEMIFENE
     Indication: CYSTOCELE
  4. OSPHENA [Suspect]
     Active Substance: OSPEMIFENE
     Indication: ATROPHIC VULVOVAGINITIS
  5. OSPHENA [Suspect]
     Active Substance: OSPEMIFENE
     Indication: OFF LABEL USE
  6. VALSARTAN AND HYDROCHLOROTHIAZIDE [Concomitant]
     Active Substance: HYDROCHLOROTHIAZIDE\VALSARTAN
     Indication: BLOOD PRESSURE MEASUREMENT
     Dosage: 160/12 HR, ONCE DAILY
     Dates: start: 201407
  7. ESTRING [Concomitant]
     Active Substance: ESTRADIOL
     Indication: PRODUCT USED FOR UNKNOWN INDICATION
     Dosage: 2 MG, UNK
     Route: 065
     Dates: start: 201412, end: 20151027
  8. OSPHENA [Suspect]
     Active Substance: OSPEMIFENE
     Indication: RECTOCELE

REACTIONS (5)
  - Pain in extremity [Not Recovered/Not Resolved]
  - Off label use [Unknown]
  - Contusion [Not Recovered/Not Resolved]
  - Breast pain [Not Recovered/Not Resolved]
  - Pruritus [Recovered/Resolved]

NARRATIVE: CASE EVENT DATE: 20151110
